FAERS Safety Report 12975333 (Version 1)
Quarter: 2016Q4

REPORT INFORMATION
  Report Type: Spontaneous
  Country: US (occurrence: US)
  Receive Date: 20161125
  Receipt Date: 20161125
  Transmission Date: 20170207
  Serious: Yes (Other)
  Sender: FDA-Public Use
  Company Number: US-B.I. PHARMACEUTICALS,INC./RIDGEFIELD-2016-BI-080633

PATIENT
  Age: 80 Year
  Sex: Male

DRUGS (6)
  1. 70/30 INSULIN [Concomitant]
     Indication: DIABETES MELLITUS
     Dosage: TWICE A DAY;  FORMULATION: SUBCUTANEOUS;
     Route: 058
     Dates: start: 1996
  2. LASIX [Concomitant]
     Active Substance: FUROSEMIDE
     Indication: ARTERIAL DISORDER
  3. LASIX [Concomitant]
     Active Substance: FUROSEMIDE
     Indication: VASCULAR GRAFT
     Route: 048
     Dates: start: 1996
  4. SPIRIVA [Suspect]
     Active Substance: TIOTROPIUM BROMIDE MONOHYDRATE
     Indication: PULMONARY FIBROSIS
     Route: 055
  5. ALBUTEROL. [Concomitant]
     Active Substance: ALBUTEROL
     Indication: WHEEZING
     Dosage: 2 PUFFS THREE TIMES A DAY AS NEEDED;  FORMULATION: INHALATION SPRAY;
     Route: 055
     Dates: start: 2014
  6. METOPROLOL. [Concomitant]
     Active Substance: METOPROLOL
     Indication: HYPERTENSION
     Route: 048
     Dates: start: 1996

REACTIONS (2)
  - Pulmonary fibrosis [Unknown]
  - Off label use [Unknown]

NARRATIVE: CASE EVENT DATE: 201605
